FAERS Safety Report 4798983-3 (Version None)
Quarter: 2005Q4

REPORT INFORMATION
  Report Type: 
  Country: None (occurrence: None)
  Receive Date: 20051011
  Receipt Date: 20050912
  Transmission Date: 20060501
  Serious: Yes (Death)
  Sender: FDA-Public Use
  Company Number: 8012415

PATIENT
  Age: 77 Year

DRUGS (3)
  1. PREDNISOLONE [Suspect]
  2. IBUPROFEN [Concomitant]
  3. PROTON PUMP INHIBITOR [Concomitant]

REACTIONS (1)
  - INTESTINAL PERFORATION [None]
